FAERS Safety Report 8407839 (Version 3)
Quarter: 2012Q4

REPORT INFORMATION
  Report Type: 
  Country: US (occurrence: US)
  Receive Date: 20120215
  Receipt Date: 20121120
  Transmission Date: 20130627
  Serious: Yes (Other)
  Sender: FDA-Public Use
  Company Number: US-ASTRAZENECA-2011SE49415

PATIENT
  Age: 46 Year
  Sex: Female

DRUGS (3)
  1. NEXIUM [Suspect]
     Indication: HIATUS HERNIA
     Route: 048
  2. NEXIUM [Suspect]
     Indication: HIATUS HERNIA
     Route: 048
  3. PROZAC [Concomitant]

REACTIONS (6)
  - Malignant melanoma [Unknown]
  - Neoplasm malignant [Unknown]
  - Systemic lupus erythematosus [Unknown]
  - Hiatus hernia [Unknown]
  - Intentional drug misuse [Unknown]
  - Drug prescribing error [Unknown]
